FAERS Safety Report 17203605 (Version 1)
Quarter: 2019Q4

REPORT INFORMATION
  Report Type: Spontaneous
  Country: JP (occurrence: JP)
  Receive Date: 20191226
  Receipt Date: 20191226
  Transmission Date: 20200122
  Serious: Yes (Other)
  Sender: FDA-Public Use
  Company Number: JP-UNITED THERAPEUTICS-UNT-2019-020864

PATIENT

DRUGS (6)
  1. UNITUXIN [Suspect]
     Active Substance: DINUTUXIMAB
     Indication: NEUROBLASTOMA
     Dosage: 17.5 MG/M2, OVER 10 HOURS
     Route: 041
  2. ACETAMINOPHEN. [Concomitant]
     Active Substance: ACETAMINOPHEN
     Indication: PREMEDICATION
     Route: 065
  3. FILGRASTIM [Suspect]
     Active Substance: FILGRASTIM
     Indication: NEUROBLASTOMA
     Dosage: 5 ?G/KG, UNK
     Route: 058
  4. HYDROXYZINE [Concomitant]
     Active Substance: HYDROXYZINE HYDROCHLORIDE
     Indication: PREMEDICATION
     Route: 065
  5. TECELEUKIN [Suspect]
     Active Substance: TECELEUKIN
     Indication: NEUROBLASTOMA
     Dosage: 0.75X10^6 IU/M^2/D DURING WEEK 1 OVER 24 HOURS FROM DAY 1 TO 4 AND DAY 8 TO 11 OF CYCLES 2 AND 4
     Route: 042
  6. TECELEUKIN [Suspect]
     Active Substance: TECELEUKIN
     Dosage: 1.0X10^6 IU/M^2/D DURING WEEK 2 OVER 24 HOURS FROM DAY 1 TO 4 AND DAY 8 TO 11 OF CYCLES 2 AND 4
     Route: 042

REACTIONS (1)
  - Pancreatitis [Unknown]
